FAERS Safety Report 18222240 (Version 1)
Quarter: 2020Q3

REPORT INFORMATION
  Report Type: Spontaneous
  Country: FR (occurrence: FR)
  Receive Date: 20200902
  Receipt Date: 20200902
  Transmission Date: 20201103
  Serious: Yes (Hospitalization)
  Sender: FDA-Public Use
  Company Number: FR-TEVA-2020-FR-1820871

PATIENT
  Age: 69 Year
  Sex: Male

DRUGS (1)
  1. IMATINIB BASE [Suspect]
     Active Substance: IMATINIB
     Indication: MYELOID LEUKAEMIA
     Dosage: 400 MG
     Route: 048
     Dates: start: 201904

REACTIONS (2)
  - Loss of consciousness [Recovered/Resolved]
  - Arrhythmia [Recovered/Resolved]

NARRATIVE: CASE EVENT DATE: 202004
